FAERS Safety Report 6747479-8 (Version None)
Quarter: 2010Q2

REPORT INFORMATION
  Report Type: 
  Country: None (occurrence: None)
  Receive Date: 20100528
  Receipt Date: 20100521
  Transmission Date: 20101027
  Serious: Yes (Other)
  Sender: FDA-Public Use
  Company Number: US-MERCK-1005USA03770

PATIENT
  Age: 6 Year
  Sex: Female

DRUGS (2)
  1. SINGULAIR [Suspect]
     Indication: HYPERSENSITIVITY
     Route: 048
     Dates: start: 20080901, end: 20081227
  2. SINGULAIR [Suspect]
     Indication: PREDISPOSITION TO DISEASE
     Route: 048
     Dates: start: 20080901, end: 20081227

REACTIONS (10)
  - ABNORMAL BEHAVIOUR [None]
  - AGGRESSION [None]
  - ANGER [None]
  - CRYING [None]
  - DECREASED APPETITE [None]
  - DISTURBANCE IN ATTENTION [None]
  - EMOTIONAL DISORDER [None]
  - FATIGUE [None]
  - SCREAMING [None]
  - SELF-INJURIOUS IDEATION [None]
